FAERS Safety Report 5110399-9 (Version None)
Quarter: 2006Q3

REPORT INFORMATION
  Report Type: 
  Country: None (occurrence: None)
  Receive Date: 20060921
  Receipt Date: 20060914
  Transmission Date: 20061208
  Serious: Yes (Other)
  Sender: FDA-Public Use
  Company Number: US-SANOFI-SYNTHELABO-A03200605725

PATIENT
  Sex: Female

DRUGS (4)
  1. AMBIEN [Suspect]
     Indication: DRUG USE FOR UNKNOWN INDICATION
     Dosage: UNK
     Route: 048
     Dates: start: 20060901
  2. SUSTAIN [Concomitant]
     Dosage: UNK
     Route: 047
  3. ECONOPRED PLUS [Concomitant]
     Dosage: UNK
     Route: 047
  4. VIGAMOX [Concomitant]
     Dosage: UNK
     Route: 047

REACTIONS (4)
  - ANGIONEUROTIC OEDEMA [None]
  - PARAESTHESIA ORAL [None]
  - SWELLING FACE [None]
  - URTICARIA [None]
